FAERS Safety Report 21211026 (Version 1)
Quarter: 2022Q3

REPORT INFORMATION
  Report Type: Spontaneous
  Country: AR (occurrence: AR)
  Receive Date: 20220815
  Receipt Date: 20220815
  Transmission Date: 20221026
  Serious: Yes (Hospitalization)
  Sender: FDA-Public Use
  Company Number: AR-NOVARTISPH-NVSC2022AR147447

PATIENT
  Age: 74 Year
  Sex: Female

DRUGS (9)
  1. LESCOL XL [Suspect]
     Active Substance: FLUVASTATIN SODIUM
     Indication: Blood cholesterol
     Dosage: (STARTED SINCE 6 YEARS AGO APPROXIMATELY) QD (1 OF 80 (UNITS NOT REPORTED) (STARTED 6 YEARS AGO APPR
     Route: 065
  2. LOSARTAN [Concomitant]
     Active Substance: LOSARTAN
     Indication: Hypertension
     Dosage: 100 OT (SINCE 15 YEARS MORE OR LESS)
     Route: 065
  3. CLONAZEPAM [Concomitant]
     Active Substance: CLONAZEPAM
     Indication: Product used for unknown indication
     Dosage: 0.5, OT , BID (SINCE 8 YEARS MORE OR LESS), AT THE MORNING AND AT NIGHT
     Route: 065
  4. PANTOPRAZOLE [Concomitant]
     Active Substance: PANTOPRAZOLE
     Indication: Gastrooesophageal reflux prophylaxis
     Dosage: 20 OT
     Route: 065
  5. FOLIC ACID [Concomitant]
     Active Substance: FOLIC ACID
     Indication: Product used for unknown indication
     Dosage: UNK (SINCE 2 YEARS)
     Route: 065
  6. BRIMOPRESS [Concomitant]
     Indication: Product used for unknown indication
     Dosage: UNK
     Route: 065
  7. OCUVITE [Concomitant]
     Active Substance: VITAMINS
     Indication: Product used for unknown indication
     Dosage: UNK
     Route: 065
  8. ROSUVASTATIN [Concomitant]
     Active Substance: ROSUVASTATIN
     Indication: Product used for unknown indication
     Route: 065
  9. FLUOXETINE [Concomitant]
     Active Substance: FLUOXETINE HYDROCHLORIDE
     Indication: Product used for unknown indication
     Dosage: 20 OT, UNTIL STABILITY
     Route: 065
     Dates: start: 202109

REACTIONS (6)
  - Heart valve stenosis [Unknown]
  - Dyspnoea [Unknown]
  - Cardiovascular disorder [Unknown]
  - Malaise [Unknown]
  - Myalgia [Unknown]
  - C-reactive protein abnormal [Unknown]

NARRATIVE: CASE EVENT DATE: 20211001
